FAERS Safety Report 8395844-8 (Version None)
Quarter: 2012Q2

REPORT INFORMATION
  Report Type: 
  Country: None (occurrence: None)
  Receive Date: 20120530
  Receipt Date: 20120523
  Transmission Date: 20120825
  Serious: No
  Sender: FDA-Public Use
  Company Number: US-TEVA-339822USA

PATIENT
  Age: 82 Year
  Sex: Female

DRUGS (2)
  1. PROAIR HFA [Suspect]
     Indication: ASTHMA
     Dosage: PRN
     Dates: start: 20111201
  2. PREDNISONE TAB [Concomitant]
     Route: 048

REACTIONS (1)
  - HEADACHE [None]
